FAERS Safety Report 11940876 (Version 3)
Quarter: 2016Q2

REPORT INFORMATION
  Report Type: Spontaneous
  Country: US (occurrence: US)
  Receive Date: 20160122
  Receipt Date: 20160425
  Transmission Date: 20160815
  Serious: Yes (Other)
  Sender: FDA-Public Use
  Company Number: US-009507513-1601USA008176

PATIENT
  Sex: Male
  Weight: 70.3 kg

DRUGS (4)
  1. ZONTIVITY [Suspect]
     Active Substance: VORAPAXAR SULFATE
     Indication: ANTICOAGULANT THERAPY
     Dosage: ONE 2.08 MG, TABLET DAILY
     Route: 048
     Dates: start: 201507, end: 20160121
  2. CRESTOR [Concomitant]
     Active Substance: ROSUVASTATIN CALCIUM
     Dosage: UNSPECIFIED DOSE
  3. ZONTIVITY [Suspect]
     Active Substance: VORAPAXAR SULFATE
     Indication: CORONARY ARTERY DISEASE
  4. ASPIRIN. [Concomitant]
     Active Substance: ASPIRIN
     Dosage: 81 MG, UNK

REACTIONS (3)
  - Blindness [Recovered/Resolved]
  - Chorioretinopathy [Recovered/Resolved]
  - Visual acuity reduced [Recovered/Resolved]
